FAERS Safety Report 10044198 (Version 1)
Quarter: 2014Q1

REPORT INFORMATION
  Report Type: Spontaneous
  Country: US (occurrence: None)
  Receive Date: 20140327
  Receipt Date: 20140327
  Transmission Date: 20141002
  Serious: Yes (Hospitalization)
  Sender: FDA-Public Use
  Company Number: None

PATIENT
  Age: 93 Year
  Sex: Male
  Weight: 45.4 kg

DRUGS (1)
  1. CIPROFLOXACIN [Suspect]
     Indication: URINARY TRACT INFECTION
     Dosage: ~11/22/2013 THRU ~12/06/2013
     Route: 048
     Dates: start: 20131122, end: 20131206

REACTIONS (5)
  - Clostridium difficile infection [None]
  - Malnutrition [None]
  - Dehydration [None]
  - Gait disturbance [None]
  - Refusal of treatment by patient [None]
